FAERS Safety Report 7877319-5 (Version None)
Quarter: 2011Q4

REPORT INFORMATION
  Report Type: 
  Country: None (occurrence: None)
  Receive Date: 20111031
  Receipt Date: 20111029
  Transmission Date: 20120403
  Serious: Yes (Other)
  Sender: FDA-Public Use
  Company Number: US-PFIZER INC-2011264826

PATIENT
  Sex: Male

DRUGS (2)
  1. HYDROCODONE BITARTRATE [Suspect]
     Dosage: UNK
  2. NEURONTIN [Suspect]
     Dosage: 300 MG, 3X/DAY

REACTIONS (6)
  - SOMNOLENCE [None]
  - DIZZINESS [None]
  - DIABETIC NEUROPATHY [None]
  - COORDINATION ABNORMAL [None]
  - TREMOR [None]
  - GAIT DISTURBANCE [None]
